FAERS Safety Report 9421091 (Version 1)
Quarter: 2013Q3

REPORT INFORMATION
  Report Type: Spontaneous
  Country: US (occurrence: US)
  Receive Date: 20130725
  Receipt Date: 20130725
  Transmission Date: 20140515
  Serious: Yes (Other)
  Sender: FDA-Public Use
  Company Number: CHPA2013US011334

PATIENT
  Age: 79 Year
  Sex: Female

DRUGS (5)
  1. EXCEDRIN TENSION HEADACHE [Suspect]
     Indication: HEADACHE
     Dosage: 1 OR 2 OR 3 DF, QD
     Route: 048
  2. EXCEDRIN TENSION HEADACHE [Suspect]
     Dosage: 2 OR 3 OR 4 DF, QD
     Route: 048
  3. EXCEDRIN EXTRA STRENGTH [Suspect]
     Indication: HEADACHE
     Dosage: 6-8 UNK, QD
     Route: 048
  4. PERCOCET [Concomitant]
     Indication: BACK PAIN
     Dosage: UNK, QD
     Dates: start: 2007
  5. NAPROXEN [Concomitant]

REACTIONS (5)
  - Spinal fracture [Not Recovered/Not Resolved]
  - Fall [Not Recovered/Not Resolved]
  - Headache [Unknown]
  - Incorrect dose administered [Unknown]
  - Incorrect drug administration duration [Unknown]
